FAERS Safety Report 10426189 (Version 1)
Quarter: 2014Q3

REPORT INFORMATION
  Report Type: Spontaneous
  Country: US (occurrence: None)
  Receive Date: 20140725
  Receipt Date: 20140725
  Transmission Date: 20150326
  Serious: No
  Sender: FDA-Public Use
  Company Number: AP356-00659-SPO-US

PATIENT
  Sex: Female
  Weight: 131 kg

DRUGS (9)
  1. AMBIEN [Concomitant]
     Active Substance: ZOLPIDEM TARTRATE
  2. TIZANIDINE [Concomitant]
     Active Substance: TIZANIDINE
  3. BELVIQ [Suspect]
     Active Substance: LORCASERIN HYDROCHLORIDE
     Indication: WEIGHT DECREASED
     Route: 048
     Dates: start: 20140416, end: 20140422
  4. HYDROCODONE [Concomitant]
     Active Substance: HYDROCODONE
  5. DAYQUIL (VICKS FORMULA 44M) [Concomitant]
  6. TRAZODONE [Concomitant]
     Active Substance: TRAZODONE HYDROCHLORIDE
  7. GABAPENTIN. [Concomitant]
     Active Substance: GABAPENTIN
  8. PROPRANOLOL [Concomitant]
     Active Substance: PROPRANOLOL\PROPRANOLOL HYDROCHLORIDE
  9. MORPHINE [Concomitant]
     Active Substance: MORPHINE

REACTIONS (8)
  - Hypotension [None]
  - Dizziness [None]
  - Heart rate decreased [None]
  - Somnolence [None]
  - Dysarthria [None]
  - Dehydration [None]
  - Back pain [None]
  - Fatigue [None]

NARRATIVE: CASE EVENT DATE: 201404
